FAERS Safety Report 13553024 (Version 2)
Quarter: 2017Q2

REPORT INFORMATION
  Report Type: Spontaneous
  Country: AU (occurrence: AU)
  Receive Date: 20170517
  Receipt Date: 20170531
  Transmission Date: 20170830
  Serious: Yes (Other)
  Sender: FDA-Public Use
  Company Number: AU-ROCHE-1935384

PATIENT
  Sex: Male

DRUGS (2)
  1. PYRIDOXINE [Concomitant]
     Active Substance: PYRIDOXINE
     Route: 065
  2. XELODA [Suspect]
     Active Substance: CAPECITABINE
     Indication: GASTROINTESTINAL CARCINOMA
     Route: 065

REACTIONS (2)
  - Chemical eye injury [Recovering/Resolving]
  - Deafness [Unknown]
